FAERS Safety Report 4817569-5 (Version None)
Quarter: 2005Q4

REPORT INFORMATION
  Report Type: 
  Country: None (occurrence: None)
  Receive Date: 20051031
  Receipt Date: 20051020
  Transmission Date: 20060501
  Serious: Yes (Hospitalization)
  Sender: FDA-Public Use
  Company Number: 2003015783

PATIENT
  Age: 22 Year
  Sex: Male
  Weight: 65 kg

DRUGS (3)
  1. ZIPRASIDONE (ZIPRASIDONE) [Suspect]
     Indication: SCHIZOPHRENIA, PARANOID TYPE
     Dosage: 4480 MG, ORAL
     Route: 048
  2. CLOMETHIAZOLE EDISILATE (CLOMETHIAZOLE EDISILATE) [Suspect]
     Indication: ANXIETY
     Dosage: ORAL
     Route: 048
  3. CLORAZEPATE DIPOTASSIUM [Concomitant]

REACTIONS (4)
  - HYPOTENSION [None]
  - INTENTIONAL OVERDOSE [None]
  - SEDATION [None]
  - SUICIDE ATTEMPT [None]
